FAERS Safety Report 11448495 (Version 3)
Quarter: 2015Q4

REPORT INFORMATION
  Report Type: Report from Study
  Country: US (occurrence: None)
  Receive Date: 20150902
  Receipt Date: 20151007
  Transmission Date: 20160304
  Serious: Yes (Other)
  Sender: FDA-Public Use
  Company Number: US-MDT-ADR-2015-01679

PATIENT
  Age: 64 Year
  Sex: Female

DRUGS (2)
  1. BACLOFEN INTRATHECAL 100MCG/ML [Suspect]
     Active Substance: BACLOFEN
     Dosage: 14.98MCG/DAY
  2. MORPHINE INTRATHECAL 40MG/ML [Suspect]
     Active Substance: MORPHINE
     Dosage: 5.992MG/DAY

REACTIONS (1)
  - Implant site extravasation [None]
